FAERS Safety Report 10441033 (Version 1)
Quarter: 2014Q3

REPORT INFORMATION
  Report Type: Spontaneous
  Country: US (occurrence: None)
  Receive Date: 20140908
  Receipt Date: 20140908
  Transmission Date: 20150326
  Serious: Yes (Other)
  Sender: FDA-Public Use
  Company Number: None

PATIENT
  Age: 58 Year
  Sex: Female
  Weight: 53.07 kg

DRUGS (1)
  1. AVONEX [Suspect]
     Active Substance: INTERFERON BETA-1A
     Indication: MULTIPLE SCLEROSIS
     Dosage: 30 MCG INJECTABLE QWK INTRAMUSCULAR 030 PATIENT IS NOT SURE, SHE USED 2 MONTHS AND INCIDENT OCCURED BEFORE 6/17/2014
     Route: 030

REACTIONS (1)
  - Blindness [None]

NARRATIVE: CASE EVENT DATE: 20140601
